FAERS Safety Report 8297188-1 (Version None)
Quarter: 2012Q2

REPORT INFORMATION
  Report Type: 
  Country: None (occurrence: None)
  Receive Date: 20120416
  Receipt Date: 20120405
  Transmission Date: 20120825
  Serious: Yes (Hospitalization)
  Sender: FDA-Public Use
  Company Number: 2012SP018806

PATIENT
  Age: 55 Year
  Sex: Male

DRUGS (9)
  1. OFLOXACIN [Suspect]
     Indication: PROSTATITIS
     Dosage: PO
     Route: 048
     Dates: start: 20120129, end: 20120229
  2. VICTRELIS [Suspect]
     Indication: HEPATITIS C
     Dosage: 800 MG, TID
     Dates: start: 20120108, end: 20120305
  3. PERINDOPRIL ERBUMINE [Concomitant]
  4. PEGASYS [Suspect]
     Indication: HEPATITIS C
     Dosage: 180 MCG;QW; SC
     Route: 058
     Dates: start: 20111129, end: 20120302
  5. SECTRAL [Concomitant]
  6. CRESTOR [Concomitant]
  7. ASPIRIN [Concomitant]
  8. ACETAMINOPHEN [Concomitant]
  9. COPEGUS [Suspect]
     Indication: HEPATITIS C
     Dosage: 1000 MG, QD, PO
     Route: 048
     Dates: start: 20111129, end: 20120305

REACTIONS (9)
  - TOXIC SKIN ERUPTION [None]
  - MYOCARDIAL INFARCTION [None]
  - PROSTATITIS [None]
  - NEUTROPENIA [None]
  - LYMPHOPENIA [None]
  - PETECHIAE [None]
  - THROMBOCYTOPENIA [None]
  - DRUG RASH WITH EOSINOPHILIA AND SYSTEMIC SYMPTOMS [None]
  - WHITE BLOOD CELL COUNT DECREASED [None]
